FAERS Safety Report 12597864 (Version 1)
Quarter: 2016Q3

REPORT INFORMATION
  Report Type: Spontaneous
  Country: US (occurrence: US)
  Receive Date: 20160727
  Receipt Date: 20160727
  Transmission Date: 20161109
  Serious: No
  Sender: FDA-Public Use
  Company Number: US-PFIZER INC-2016359240

PATIENT
  Sex: Male

DRUGS (1)
  1. LYRICA [Suspect]
     Active Substance: PREGABALIN
     Dosage: UNK
     Dates: end: 201607

REACTIONS (7)
  - Malaise [Unknown]
  - Feeling abnormal [Unknown]
  - Muscle spasms [Unknown]
  - Bedridden [Unknown]
  - Nausea [Unknown]
  - Hot flush [Unknown]
  - Dyspnoea [Unknown]

NARRATIVE: CASE EVENT DATE: 201607
